FAERS Safety Report 9777494 (Version 1)
Quarter: 2013Q4

REPORT INFORMATION
  Report Type: Spontaneous
  Country: US (occurrence: US)
  Receive Date: 20131221
  Receipt Date: 20131221
  Transmission Date: 20140711
  Serious: No
  Sender: FDA-Public Use
  Company Number: US-009507513-1312USA005389

PATIENT
  Age: 32 Year
  Sex: Female
  Weight: 79.37 kg

DRUGS (1)
  1. NEXPLANON [Suspect]
     Dosage: (1 STANDARD PACKAGE OF PF APPLI OF 1)
     Route: 059
     Dates: start: 20130901

REACTIONS (4)
  - Postpartum haemorrhage [Unknown]
  - Menorrhagia [Not Recovered/Not Resolved]
  - Vaginal haemorrhage [Unknown]
  - Vaginal haemorrhage [Unknown]
